FAERS Safety Report 7376989-8 (Version None)
Quarter: 2011Q1

REPORT INFORMATION
  Report Type: 
  Country: None (occurrence: None)
  Receive Date: 20110328
  Receipt Date: 20110314
  Transmission Date: 20110831
  Serious: Yes (Congenital Anomaly)
  Sender: FDA-Public Use
  Company Number: US-BIOGENIDEC-2011BI009706

PATIENT
  Age: 0 Day
  Sex: Female

DRUGS (6)
  1. AVONEX [Suspect]
     Indication: DRUG EXPOSURE DURING PREGNANCY
     Route: 030
     Dates: start: 20080915, end: 20100406
  2. ZANTAC [Concomitant]
     Indication: GASTROOESOPHAGEAL REFLUX DISEASE
     Dates: start: 20101227
  3. PRENATAL VITAMINS [Concomitant]
     Indication: DRUG EXPOSURE DURING PREGNANCY
     Route: 048
     Dates: start: 20100407
  4. TYLENOL PM [Concomitant]
     Indication: DRUG EXPOSURE DURING PREGNANCY
     Route: 048
  5. PREVACID [Concomitant]
     Indication: GASTROOESOPHAGEAL REFLUX DISEASE
     Dates: start: 20101227
  6. FERRALET [Concomitant]
     Indication: DRUG EXPOSURE DURING PREGNANCY
     Route: 048
     Dates: start: 20100504

REACTIONS (5)
  - CONGENITAL INTESTINAL MALFORMATION [None]
  - MARCUS GUNN SYNDROME [None]
  - ATRIAL SEPTAL DEFECT [None]
  - TORTICOLLIS [None]
  - GASTROOESOPHAGEAL REFLUX DISEASE [None]
